FAERS Safety Report 16766354 (Version 3)
Quarter: 2019Q3

REPORT INFORMATION
  Report Type: Spontaneous
  Country: JP (occurrence: JP)
  Receive Date: 20190903
  Receipt Date: 20190923
  Transmission Date: 20191005
  Serious: Yes (Hospitalization, Other)
  Sender: FDA-Public Use
  Company Number: JP-PFIZER INC-2019370791

PATIENT

DRUGS (1)
  1. SUTENT [Suspect]
     Active Substance: SUNITINIB MALATE
     Indication: RENAL CELL CARCINOMA
     Dosage: UNK

REACTIONS (6)
  - General physical health deterioration [Not Recovered/Not Resolved]
  - Dizziness [Unknown]
  - Protein urine present [Recovered/Resolved]
  - Cerebral haemorrhage [Unknown]
  - Nephrotic syndrome [Recovered/Resolved]
  - Neoplasm progression [Unknown]
